FAERS Safety Report 4571802-6 (Version None)
Quarter: 2005Q1

REPORT INFORMATION
  Report Type: 
  Country: None (occurrence: None)
  Receive Date: 20050202
  Receipt Date: 20050120
  Transmission Date: 20050727
  Serious: Yes (Other)
  Sender: FDA-Public Use
  Company Number: 2004117964

PATIENT
  Age: 58 Year
  Sex: Female
  Weight: 77.1115 kg

DRUGS (4)
  1. BEXTRA [Suspect]
     Indication: ARTHRALGIA
     Dosage: 10 MG (10 MG, 1 IN 1 D), ORAL
     Route: 048
     Dates: start: 20040504, end: 20040525
  2. CELEBREX [Suspect]
     Indication: ILL-DEFINED DISORDER
  3. IBUPROFEN [Concomitant]
  4. LEVOTHYROXINE SODIUM [Concomitant]

REACTIONS (16)
  - BLISTER [None]
  - DERMATITIS [None]
  - DIZZINESS [None]
  - DRUG INEFFECTIVE [None]
  - DYSPNOEA [None]
  - ERYTHEMA [None]
  - FEELING ABNORMAL [None]
  - HYPERSENSITIVITY [None]
  - LATEX ALLERGY [None]
  - MORPHOEA [None]
  - PAIN [None]
  - PARAESTHESIA [None]
  - PRURITUS [None]
  - RASH [None]
  - SCAR [None]
  - THROAT TIGHTNESS [None]
